FAERS Safety Report 9428141 (Version 1)
Quarter: 2013Q3

REPORT INFORMATION
  Report Type: Spontaneous
  Country: US (occurrence: US)
  Receive Date: 20130730
  Receipt Date: 20130730
  Transmission Date: 20140515
  Serious: No
  Sender: FDA-Public Use
  Company Number: US-ABBOTT-12P-163-1001865-00

PATIENT
  Age: 91 Year
  Sex: Female
  Weight: 81.72 kg

DRUGS (9)
  1. NIASPAN (COATED) [Suspect]
     Indication: BLOOD CHOLESTEROL INCREASED
     Dates: start: 20121022, end: 20121028
  2. LISINOPRIL [Concomitant]
     Indication: HYPERTENSION
  3. ATENOLOL [Concomitant]
     Indication: HYPERTENSION
  4. UNKNOWN LOW THYROID MEDICATION [Concomitant]
     Indication: PRODUCT USED FOR UNKNOWN INDICATION
  5. DIURETICS [Concomitant]
     Indication: PRODUCT USED FOR UNKNOWN INDICATION
  6. MVI [Concomitant]
     Indication: PRODUCT USED FOR UNKNOWN INDICATION
  7. COSOPT [Concomitant]
     Indication: GLAUCOMA
  8. BRIMIDEN [Concomitant]
     Indication: GLAUCOMA
  9. AMBIEN [Concomitant]
     Indication: PRODUCT USED FOR UNKNOWN INDICATION

REACTIONS (2)
  - Muscular weakness [Not Recovered/Not Resolved]
  - Myalgia [Not Recovered/Not Resolved]
